FAERS Safety Report 8479007 (Version 2)
Quarter: 2013Q1

REPORT INFORMATION
  Report Type: Report from Study
  Country: DE (occurrence: DE)
  Receive Date: 20120327
  Receipt Date: 20130214
  Transmission Date: 20140127
  Serious: Yes (Hospitalization, Disabling, Other)
  Sender: FDA-Public Use
  Company Number: PHHO2011DE06874

PATIENT
  Age: 58 Year
  Sex: Female
  Weight: 78 kg

DRUGS (5)
  1. MYCOPHENOLIC ACID [Suspect]
     Indication: RENAL TRANSPLANT
     Dosage: 540 MG, 1-0-1
     Route: 048
     Dates: start: 20100914, end: 20100930
  2. RITUXIMAB [Concomitant]
     Indication: RENAL TRANSPLANT
     Dosage: 375 MG/M2, UNK
     Route: 042
     Dates: start: 20100815
  3. PROGRAF [Concomitant]
     Indication: RENAL TRANSPLANT
     Dosage: 13 MG, UNK
     Route: 048
     Dates: start: 20100917
  4. EVEROLIMUS [Concomitant]
     Indication: RENAL TRANSPLANT
  5. AZATHIOPRINE [Concomitant]

REACTIONS (2)
  - Diverticulitis [Recovered/Resolved]
  - Kidney transplant rejection [Recovered/Resolved]
